FAERS Safety Report 7541135-4 (Version None)
Quarter: 2011Q2

REPORT INFORMATION
  Report Type: 
  Country: None (occurrence: None)
  Receive Date: 20110610
  Receipt Date: 20110608
  Transmission Date: 20111010
  Serious: Yes (Hospitalization)
  Sender: FDA-Public Use
  Company Number: JP-ABBOTT-10P-087-0651074-00

PATIENT
  Sex: Female

DRUGS (7)
  1. CYCLOPHOSPHAMIDE [Concomitant]
     Indication: PRODUCT USED FOR UNKNOWN INDICATION
     Dates: start: 20090219
  2. TOREMIFENE CITRATE [Suspect]
     Indication: BREAST CANCER
     Route: 048
     Dates: start: 20090411, end: 20100609
  3. LEUPROLIDE ACETATE [Suspect]
     Indication: BREAST CANCER
     Route: 058
     Dates: start: 20090219, end: 20100414
  4. TAXOL [Concomitant]
     Indication: PRODUCT USED FOR UNKNOWN INDICATION
     Route: 050
     Dates: start: 20090219
  5. MAGMITT [Concomitant]
     Indication: PRODUCT USED FOR UNKNOWN INDICATION
     Route: 048
  6. ZOMETA [Suspect]
     Route: 042
  7. ZOMETA [Suspect]
     Indication: BREAST CANCER
     Route: 041
     Dates: end: 20100609

REACTIONS (1)
  - INTERSTITIAL LUNG DISEASE [None]
